FAERS Safety Report 4421209-7 (Version None)
Quarter: 2004Q3

REPORT INFORMATION
  Report Type: 
  Country: None (occurrence: None)
  Receive Date: 20040707
  Receipt Date: 20040406
  Transmission Date: 20050211
  Serious: No
  Sender: FDA-Public Use
  Company Number: SU-2004-002274

PATIENT
  Age: 48 Year
  Sex: Male
  Weight: 74.8435 kg

DRUGS (1)
  1. BENICAR HCT [Suspect]
     Indication: HYPERTENSION
     Dosage: 40.125 MG QD PO
     Route: 048
     Dates: start: 20040402

REACTIONS (5)
  - ASTHENIA [None]
  - FLATULENCE [None]
  - HEART RATE INCREASED [None]
  - POLLAKIURIA [None]
  - SOMNOLENCE [None]
